FAERS Safety Report 18048678 (Version 1)
Quarter: 2020Q3

REPORT INFORMATION
  Report Type: Spontaneous
  Country: US (occurrence: US)
  Receive Date: 20200721
  Receipt Date: 20200721
  Transmission Date: 20201103
  Serious: No
  Sender: FDA-Public Use
  Company Number: US-BAYER-2020-145589

PATIENT
  Sex: Female

DRUGS (2)
  1. CLARITIN [Suspect]
     Active Substance: LORATADINE
     Indication: ALLERGY PROPHYLAXIS
     Dosage: UNK
  2. CLARITIN [Suspect]
     Active Substance: LORATADINE
     Indication: ALLERGY PROPHYLAXIS
     Dosage: 2 TABLETS PER WEEK
     Route: 048
     Dates: end: 20200702

REACTIONS (8)
  - Nasal dryness [Unknown]
  - Nasal dryness [Unknown]
  - Nasal dryness [Unknown]
  - Somnolence [Unknown]
  - Dry throat [Unknown]
  - Dry throat [Unknown]
  - Product use in unapproved indication [Unknown]
  - Dry throat [Unknown]

NARRATIVE: CASE EVENT DATE: 20200619
